FAERS Safety Report 13108083 (Version 4)
Quarter: 2017Q1

REPORT INFORMATION
  Report Type: Spontaneous
  Country: US (occurrence: US)
  Receive Date: 20170112
  Receipt Date: 20170328
  Transmission Date: 20170428
  Serious: Yes (Hospitalization, Other)
  Sender: FDA-Public Use
  Company Number: US-PFIZER INC-2017011134

PATIENT
  Age: 52 Year
  Sex: Female
  Weight: 83 kg

DRUGS (9)
  1. LYRICA [Suspect]
     Active Substance: PREGABALIN
     Indication: NEUROPATHY PERIPHERAL
     Dosage: 225 MG, 3X/DAY
     Route: 048
  2. CINNAMON. [Concomitant]
     Active Substance: CINNAMON
     Dosage: UNK
     Dates: start: 2010
  3. CURAMIN [Concomitant]
     Active Substance: HERBALS
     Dosage: UNK
     Dates: start: 201702
  4. GINGER ROOT [Concomitant]
     Active Substance: GINGER
     Dosage: UNK
     Dates: start: 2015
  5. VITAMIN D3 [Concomitant]
     Active Substance: CHOLECALCIFEROL
     Indication: SUPPLEMENTATION THERAPY
     Dosage: 1000 IU, 1X/DAY
     Route: 048
     Dates: start: 2010
  6. LYRICA [Suspect]
     Active Substance: PREGABALIN
     Indication: DIABETIC NEUROPATHY
     Dosage: 225 MG, 3X/DAY
     Route: 048
     Dates: start: 2010, end: 20161219
  7. GABAPENTIN. [Suspect]
     Active Substance: GABAPENTIN
     Dosage: 400 MG, UNK
  8. GABAPENTIN. [Suspect]
     Active Substance: GABAPENTIN
     Indication: NEUROPATHY PERIPHERAL
     Dosage: ^800 MG X 3^
     Dates: start: 2012
  9. MULTIVITAMINS [Concomitant]
     Active Substance: VITAMINS

REACTIONS (19)
  - Back pain [Recovered/Resolved]
  - Feeling cold [Recovered/Resolved]
  - Dysgeusia [Unknown]
  - Crying [Unknown]
  - Hypersensitivity [Unknown]
  - Prescribed overdose [Unknown]
  - Pain in extremity [Recovered/Resolved]
  - Drug effect incomplete [Unknown]
  - Asthenia [Recovered/Resolved]
  - Onychalgia [Unknown]
  - Withdrawal syndrome [Recovered/Resolved]
  - Influenza [Unknown]
  - Abdominal pain upper [Recovered/Resolved]
  - Hyperhidrosis [Recovered/Resolved]
  - Influenza like illness [Recovered/Resolved]
  - Product use issue [Unknown]
  - Pain [Recovered/Resolved]
  - Pyrexia [Recovered/Resolved]
  - Toothache [Unknown]

NARRATIVE: CASE EVENT DATE: 2010
